FAERS Safety Report 16810640 (Version 1)
Quarter: 2019Q3

REPORT INFORMATION
  Report Type: Spontaneous
  Country: US (occurrence: US)
  Receive Date: 20190916
  Receipt Date: 20190916
  Transmission Date: 20191005
  Serious: Yes (Life-Threatening, Hospitalization, Other)
  Sender: FDA-Public Use
  Company Number: US-RISING PHARMACEUTICALS, INC.-2019RIS00482

PATIENT
  Age: 23 Year
  Sex: Female

DRUGS (1)
  1. TEMOZOLOMIDE. [Suspect]
     Active Substance: TEMOZOLOMIDE
     Route: 048

REACTIONS (7)
  - Cardiomegaly [Unknown]
  - Aplastic anaemia [Recovering/Resolving]
  - Decerebrate posture [Unknown]
  - Brain injury [Not Recovered/Not Resolved]
  - Accidental exposure to product by child [Recovered/Resolved]
  - Pulseless electrical activity [Recovering/Resolving]
  - Hypotension [Unknown]
